FAERS Safety Report 23613058 (Version 5)
Quarter: 2024Q3

REPORT INFORMATION
  Report Type: Spontaneous
  Country: US (occurrence: US)
  Receive Date: 20240308
  Receipt Date: 20240710
  Transmission Date: 20241017
  Serious: No
  Sender: PFIZER
  Company Number: US-PFIZER INC-PV202400032173

PATIENT
  Age: 78 Year
  Sex: Female
  Weight: 90.1 kg

DRUGS (1)
  1. PREMARIN [Suspect]
     Active Substance: ESTROGENS, CONJUGATED
     Indication: Hysterectomy
     Dosage: 0.5 G, 3 X/WK
     Route: 067

REACTIONS (2)
  - Overweight [Unknown]
  - Off label use [Unknown]
